FAERS Safety Report 10090517 (Version 2)
Quarter: 2014Q2

REPORT INFORMATION
  Report Type: Report from Study
  Country: US (occurrence: US)
  Receive Date: 20140421
  Receipt Date: 20140611
  Transmission Date: 20141212
  Serious: Yes (Disabling, Other)
  Sender: FDA-Public Use
  Company Number: PHEH2014US007689

PATIENT
  Sex: Male

DRUGS (1)
  1. NEORAL [Suspect]
     Dosage: 75 MG, BID

REACTIONS (1)
  - Blindness [Unknown]
